FAERS Safety Report 24339769 (Version 2)
Quarter: 2024Q4

REPORT INFORMATION
  Report Type: Spontaneous
  Country: US (occurrence: US)
  Receive Date: 20240919
  Receipt Date: 20241008
  Transmission Date: 20250115
  Serious: Yes (Other)
  Sender: ELI LILLY AND CO
  Company Number: US-ELI_LILLY_AND_COMPANY-US202409004318

PATIENT
  Age: 77 Year
  Sex: Female

DRUGS (3)
  1. HUMALOG MIX75/25 [Suspect]
     Active Substance: INSULIN LISPRO
     Indication: Diabetes mellitus
     Dosage: 48 U, BID
     Route: 065
     Dates: start: 2012
  2. HUMALOG MIX75/25 [Suspect]
     Active Substance: INSULIN LISPRO
     Dosage: 48 U, BID
     Route: 065
  3. HUMALOG MIX75/25 [Suspect]
     Active Substance: INSULIN LISPRO
     Dosage: 48 U, BID
     Route: 065

REACTIONS (7)
  - Neoplasm malignant [Unknown]
  - Blood pressure increased [Unknown]
  - Blindness unilateral [Recovering/Resolving]
  - Nephrolithiasis [Unknown]
  - Gait disturbance [Unknown]
  - COVID-19 [Unknown]
  - Hypoacusis [Unknown]
